FAERS Safety Report 24467519 (Version 1)
Quarter: 2024Q4

REPORT INFORMATION
  Report Type: Spontaneous
  Country: US (occurrence: US)
  Receive Date: 20241018
  Receipt Date: 20241018
  Transmission Date: 20250114
  Serious: No
  Sender: ROCHE
  Company Number: US-ROCHE-3563640

PATIENT
  Age: 59 Year
  Sex: Female

DRUGS (1)
  1. XOLAIR [Suspect]
     Active Substance: OMALIZUMAB
     Indication: Product used for unknown indication
     Route: 065

REACTIONS (11)
  - Peripheral swelling [Unknown]
  - Capillary fragility [Unknown]
  - Vasculitis [Unknown]
  - Pharyngeal swelling [Unknown]
  - Ear pain [Unknown]
  - Otorrhoea [Unknown]
  - Heart rate increased [Unknown]
  - Hypertension [Unknown]
  - Swelling face [Unknown]
  - Skin discolouration [Unknown]
  - Laryngitis [Unknown]
